FAERS Safety Report 5678628-0 (Version None)
Quarter: 2008Q1

REPORT INFORMATION
  Report Type: 
  Country: None (occurrence: None)
  Receive Date: 20080325
  Receipt Date: 20080313
  Transmission Date: 20080703
  Serious: Yes (Life-Threatening)
  Sender: FDA-Public Use
  Company Number: JP-JNJFOC-20071201996

PATIENT
  Sex: Female

DRUGS (19)
  1. ITRIZOLE [Suspect]
     Dosage: PULSE THERAPY
     Route: 048
  2. ITRIZOLE [Suspect]
     Indication: ONYCHOMYCOSIS
     Route: 048
  3. OMEPRAZOLE [Concomitant]
     Indication: GASTRIC ULCER
     Route: 048
  4. BASEN [Concomitant]
     Indication: DIABETES MELLITUS
     Route: 048
  5. LENDORMIN [Concomitant]
     Indication: INSOMNIA
     Route: 048
  6. CALTAN [Concomitant]
     Indication: HYPERPROLACTINAEMIA
     Route: 048
  7. NORVASC [Concomitant]
     Indication: HYPERTENSION
     Route: 048
  8. CARDENALIN [Concomitant]
     Indication: HYPERTENSION
     Route: 048
  9. LASIX [Concomitant]
     Indication: RENAL FAILURE CHRONIC
     Route: 048
  10. PHOSBLOCK [Concomitant]
     Indication: HYPERPROLACTINAEMIA
     Route: 048
  11. SIGMART [Concomitant]
     Indication: MYOCARDIAL ISCHAEMIA
     Route: 048
  12. DIOVAN [Concomitant]
     Indication: HYPERTENSION
     Route: 048
  13. ASPIRIN [Concomitant]
     Indication: MYOCARDIAL INFARCTION
     Route: 048
  14. ALLOID G [Concomitant]
     Indication: GASTRIC ULCER
     Route: 048
  15. SILECE [Concomitant]
     Indication: INSOMNIA
     Route: 048
  16. DEPAS [Concomitant]
     Indication: ANXIETY
     Route: 048
  17. GLYSENNID [Concomitant]
     Indication: CONSTIPATION
     Route: 048
  18. ALINAMIN-F [Concomitant]
     Indication: VITAMIN B COMPLEX DEFICIENCY
     Route: 048
  19. LORCAM [Concomitant]
     Indication: BACK PAIN
     Route: 048

REACTIONS (4)
  - ANAEMIA [None]
  - BLOOD PRESSURE DECREASED [None]
  - GASTROINTESTINAL HAEMORRHAGE [None]
  - NEPHROGENIC ANAEMIA [None]
